FAERS Safety Report 6332085-X (Version None)
Quarter: 2009Q3

REPORT INFORMATION
  Report Type: 
  Country: None (occurrence: None)
  Receive Date: 20090828
  Receipt Date: 20090817
  Transmission Date: 20100115
  Serious: Yes (Death)
  Sender: FDA-Public Use
  Company Number: GB-RANBAXY-2009RR-26513

PATIENT
  Age: 54 Year
  Sex: Male

DRUGS (2)
  1. FELODIPINE [Suspect]
     Dosage: 250 MG, UNK
     Route: 048
  2. BENDROFLUMETHIAZIDE [Concomitant]
     Dosage: 2.5 MG, QD

REACTIONS (3)
  - DEATH [None]
  - OVERDOSE [None]
  - SUICIDE ATTEMPT [None]
